FAERS Safety Report 10525190 (Version 1)
Quarter: 2014Q4

REPORT INFORMATION
  Report Type: Report from Study
  Country: US (occurrence: US)
  Receive Date: 20141017
  Receipt Date: 20141017
  Transmission Date: 20150528
  Serious: Yes (Hospitalization, Other)
  Sender: FDA-Public Use
  Company Number: US-TEVA-516106USA

PATIENT
  Sex: Male

DRUGS (3)
  1. CLOZAPINE. [Suspect]
     Active Substance: CLOZAPINE
     Indication: DEMENTIA WITH LEWY BODIES
     Route: 048
  2. CLOZAPINE. [Suspect]
     Active Substance: CLOZAPINE
     Indication: AGITATION
  3. CLOZAPINE. [Suspect]
     Active Substance: CLOZAPINE
     Indication: PARANOIA

REACTIONS (3)
  - Fall [Unknown]
  - Mental disorder [Unknown]
  - Subarachnoid haemorrhage [Unknown]
